FAERS Safety Report 9661328 (Version 2)
Quarter: 2013Q4

REPORT INFORMATION
  Report Type: Report from Study
  Country: DE (occurrence: DE)
  Receive Date: 20131031
  Receipt Date: 20131113
  Transmission Date: 20140711
  Serious: Yes (Other)
  Sender: FDA-Public Use
  Company Number: DE-UCBSA-101788

PATIENT
  Age: 48 Year
  Sex: Female
  Weight: 75 kg

DRUGS (5)
  1. CIMZIA [Suspect]
     Indication: RHEUMATOID ARTHRITIS
     Route: 058
     Dates: start: 20130228, end: 20130816
  2. LOSARTAN [Suspect]
     Indication: HYPERTENSION
     Route: 048
     Dates: start: 201101
  3. NOVAMINSULFON [Concomitant]
     Dosage: FREQUENCY :3
     Route: 048
  4. TRAMADOL [Concomitant]
  5. GABAPENTIN [Concomitant]
     Dosage: FREQUENCY: 3
     Route: 048

REACTIONS (1)
  - Herpes zoster [Recovering/Resolving]
